FAERS Safety Report 20176285 (Version 2)
Quarter: 2022Q3

REPORT INFORMATION
  Report Type: Report from Study
  Country: AU (occurrence: AU)
  Receive Date: 20211213
  Receipt Date: 20220727
  Transmission Date: 20221026
  Serious: Yes (Other)
  Sender: FDA-Public Use
  Company Number: AU-PFIZER INC-2019419929

PATIENT

DRUGS (3)
  1. CISPLATIN [Suspect]
     Active Substance: CISPLATIN
     Indication: Metastatic gastric cancer
     Dosage: DAY 1, MAXIMUM OF SIX 21-DAY CYCLES
     Route: 042
  2. PACLITAXEL [Suspect]
     Active Substance: PACLITAXEL
     Indication: Metastatic gastric cancer
     Dosage: DAYS 1 AND 8, MAXIMUM OF SIX 21-DAY CYCLES
     Route: 033
  3. CAPECITABINE [Suspect]
     Active Substance: CAPECITABINE
     Indication: Metastatic gastric cancer
     Dosage: PO BD DAYS 1-14, MAXIMUM OF SIX 21-DAY CYCLES
     Route: 048

REACTIONS (1)
  - Small intestinal obstruction [Recovered/Resolved]
